FAERS Safety Report 9472940 (Version 1)
Quarter: 2013Q3

REPORT INFORMATION
  Report Type: Spontaneous
  Country: US (occurrence: US)
  Receive Date: 20130823
  Receipt Date: 20130823
  Transmission Date: 20140515
  Serious: No
  Sender: FDA-Public Use
  Company Number: US-BRISTOL-MYERS SQUIBB COMPANY-17253287

PATIENT
  Age: 43 Year
  Sex: Male
  Weight: 113 kg

DRUGS (7)
  1. SPRYCEL (CML) TABS 50 MG [Suspect]
     Dosage: TABS
     Dates: start: 20121201
  2. METFORMIN [Concomitant]
  3. METOPROLOL [Concomitant]
  4. SIMVASTATIN [Concomitant]
  5. AMLODIPINE [Concomitant]
  6. GLIPIZIDE [Concomitant]
  7. BENAZEPRIL HCL [Concomitant]

REACTIONS (2)
  - Constipation [Unknown]
  - Dysgeusia [Unknown]
